FAERS Safety Report 4714519-7 (Version None)
Quarter: 2005Q3

REPORT INFORMATION
  Report Type: 
  Country: None (occurrence: None)
  Receive Date: 20050712
  Receipt Date: 20050630
  Transmission Date: 20060218
  Serious: Yes (Hospitalization)
  Sender: FDA-Public Use
  Company Number: ST-2005-008481

PATIENT
  Age: 58 Year
  Sex: Male

DRUGS (6)
  1. OLMETEC [Suspect]
     Indication: HYPERTENSION
     Dosage: 10 MG QD PO; 20 MG QD PO
     Route: 048
     Dates: start: 20050317, end: 20050330
  2. OLMETEC [Suspect]
     Indication: HYPERTENSION
     Dosage: 10 MG QD PO; 20 MG QD PO
     Route: 048
     Dates: start: 20050331
  3. CALBLOCK [Concomitant]
  4. BEZATOL- SLOW RELEASE [Concomitant]
  5. CHLORPHENIRAMINE MALEATE [Concomitant]
  6. TAKEPRON [Concomitant]

REACTIONS (3)
  - INFLUENZA LIKE ILLNESS [None]
  - MALAISE [None]
  - PNEUMONIA [None]
